FAERS Safety Report 21809379 (Version 2)
Quarter: 2023Q2

REPORT INFORMATION
  Report Type: Report from Study
  Country: US (occurrence: US)
  Receive Date: 20230103
  Receipt Date: 20230405
  Transmission Date: 20230722
  Serious: No
  Sender: FDA-Public Use
  Company Number: US-ABBVIE-4226577

PATIENT
  Age: 41 Year
  Sex: Female
  Weight: 135.62 kg

DRUGS (6)
  1. HUMIRA [Suspect]
     Active Substance: ADALIMUMAB
     Indication: Psoriasis
     Dosage: CITRATE FREE
     Route: 058
     Dates: start: 20221128
  2. HUMIRA [Suspect]
     Active Substance: ADALIMUMAB
     Indication: Psoriatic arthropathy
     Dosage: CITRATE FREE, FORM STRENGTH: 40 MG
     Route: 058
  3. HUMIRA [Suspect]
     Active Substance: ADALIMUMAB
     Dosage: CITRATE FREE, FORM STRENGTH: 40 MG
     Route: 058
     Dates: start: 20221219
  4. TYLENOL EXTRA STRENGTH [Concomitant]
     Active Substance: ACETAMINOPHEN
     Indication: Product used for unknown indication
     Dosage: PILL, 1 DOSE DAILY
     Route: 048
     Dates: start: 20220922
  5. DICLOFENAC [Concomitant]
     Active Substance: DICLOFENAC
     Indication: Product used for unknown indication
     Dosage: PILL, 2 DAILY
     Route: 048
     Dates: start: 20220922
  6. ZYRTEC [Concomitant]
     Active Substance: CETIRIZINE HYDROCHLORIDE
     Indication: Product used for unknown indication
     Dosage: PILL , 2 DAILY
     Route: 048
     Dates: start: 20220717

REACTIONS (3)
  - Nasopharyngitis [Recovered/Resolved]
  - Cough [Recovered/Resolved]
  - Oropharyngeal pain [Recovered/Resolved]

NARRATIVE: CASE EVENT DATE: 20221204
